FAERS Safety Report 8304267-9 (Version None)
Quarter: 2012Q2

REPORT INFORMATION
  Report Type: 
  Country: None (occurrence: None)
  Receive Date: 20120423
  Receipt Date: 20120416
  Transmission Date: 20120825
  Serious: Yes (Hospitalization)
  Sender: FDA-Public Use
  Company Number: PHEH2012US008250

PATIENT

DRUGS (1)
  1. GILENYA [Suspect]
     Dosage: 0.5 MG, QD
     Route: 048

REACTIONS (3)
  - RED BLOOD CELL SEDIMENTATION RATE INCREASED [None]
  - HEADACHE [None]
  - PYREXIA [None]
